FAERS Safety Report 9449065 (Version 3)
Quarter: 2013Q4

REPORT INFORMATION
  Report Type: Spontaneous
  Country: US (occurrence: None)
  Receive Date: 20130806
  Receipt Date: 20131227
  Transmission Date: 20140711
  Serious: Yes (Hospitalization, Congenital Anomaly)
  Sender: FDA-Public Use
  Company Number: SYM-2013-07592

PATIENT
  Age: 0 Day
  Sex: Male

DRUGS (1)
  1. WELLBUTRIN XL [Suspect]
     Indication: PRODUCT USED FOR UNKNOWN INDICATION
     Route: 064
     Dates: start: 20060909, end: 20061030

REACTIONS (5)
  - Bicuspid aortic valve [None]
  - Maternal drugs affecting foetus [None]
  - Atrial septal defect [None]
  - Aortic valve stenosis [None]
  - Atrial septal defect [None]
